FAERS Safety Report 9233593 (Version 4)
Quarter: 2014Q2

REPORT INFORMATION
  Report Type: Report from Study
  Country: US (occurrence: US)
  Receive Date: 20130416
  Receipt Date: 20140609
  Transmission Date: 20141212
  Serious: Yes (Life-Threatening, Hospitalization)
  Sender: FDA-Public Use
  Company Number: US-JNJFOC-20130314055

PATIENT
  Age: 17 Year
  Sex: Female
  Weight: 48.4 kg

DRUGS (13)
  1. REMICADE [Suspect]
     Indication: INFLAMMATORY BOWEL DISEASE
     Route: 042
     Dates: start: 20090603
  2. PREDNISONE [Suspect]
     Indication: INFLAMMATORY BOWEL DISEASE
     Route: 065
  3. 6-MERCAPTOPURINE [Suspect]
     Indication: INFLAMMATORY BOWEL DISEASE
     Route: 065
  4. ANUSOL HC [Suspect]
     Indication: PRODUCT USED FOR UNKNOWN INDICATION
     Route: 065
  5. TRAMADOL [Suspect]
     Indication: PRODUCT USED FOR UNKNOWN INDICATION
     Route: 065
  6. ENOXAPARIN [Suspect]
     Indication: PRODUCT USED FOR UNKNOWN INDICATION
     Route: 065
  7. POTASSIUM CHLORIDE [Concomitant]
     Route: 065
  8. PRENATAL VITAMIN [Concomitant]
     Route: 065
  9. FOLATE [Concomitant]
     Route: 065
  10. MAGNESIUM SULFATE [Concomitant]
     Route: 065
  11. FERROUS SULFATE [Concomitant]
     Route: 065
  12. SODIUM PHOSPHATES [Concomitant]
     Route: 065
  13. POTASSIUM PHOSPHATE [Concomitant]
     Route: 065

REACTIONS (2)
  - Sepsis [Recovered/Resolved]
  - Exposure during pregnancy [Recovered/Resolved]
